FAERS Safety Report 7430998-9 (Version None)
Quarter: 2011Q2

REPORT INFORMATION
  Report Type: 
  Country: None (occurrence: None)
  Receive Date: 20110421
  Receipt Date: 20110414
  Transmission Date: 20111010
  Serious: Yes (Other)
  Sender: FDA-Public Use
  Company Number: DE-AMGEN-DEUSP2010001513

PATIENT
  Age: 36 Year
  Sex: Female

DRUGS (4)
  1. NPLATE [Suspect]
     Indication: IDIOPATHIC THROMBOCYTOPENIC PURPURA
     Dosage: UNK
     Dates: start: 20090731, end: 20100919
  2. AZATHIOPRIN [Concomitant]
     Dosage: UNK
     Dates: end: 20090701
  3. GAMUNEX [Concomitant]
     Dosage: UNK
     Dates: start: 20090501
  4. FERROSANOL [Concomitant]
     Dosage: UNK
     Dates: start: 20090701

REACTIONS (2)
  - BONE MARROW RETICULIN FIBROSIS [None]
  - BIOPSY BONE MARROW ABNORMAL [None]
